FAERS Safety Report 6010135-8 (Version None)
Quarter: 2008Q4

REPORT INFORMATION
  Report Type: 
  Country: None (occurrence: None)
  Receive Date: 20081217
  Receipt Date: 20081217
  Transmission Date: 20090506
  Serious: Yes (Other)
  Sender: FDA-Public Use
  Company Number: None

PATIENT
  Age: 75 Year
  Sex: Female
  Weight: 74.8435 kg

DRUGS (1)
  1. RECLAST [Suspect]
     Indication: OSTEOARTHRITIS
     Dosage: INJECTION 1 YR.
     Dates: start: 20081028

REACTIONS (4)
  - BACK PAIN [None]
  - BONE PAIN [None]
  - MUSCLE SPASMS [None]
  - NECK PAIN [None]
